FAERS Safety Report 20824953 (Version 3)
Quarter: 2022Q4

REPORT INFORMATION
  Report Type: Other
  Country: US (occurrence: None)
  Receive Date: 20220513
  Receipt Date: 20221003
  Transmission Date: 20230112
  Serious: Yes (Hospitalization)
  Sender: FDA-Public Use
  Company Number: US-ROCHE-3092594

PATIENT
  Age: 35 Year
  Sex: Male

DRUGS (13)
  1. HEMLIBRA [Suspect]
     Active Substance: EMICIZUMAB-KXWH
     Indication: Haemophilia A with anti factor VIII
     Dosage: EVERY WEDNESDAY, ON 06/JUL/2022, PATIENT TOOK LAST DOSE, INJECT 135MG SUBCUTANEOUSLY WEEKLY. INJECT
     Route: 058
     Dates: start: 2020
  2. HEMLIBRA [Suspect]
     Active Substance: EMICIZUMAB-KXWH
     Indication: Factor VIII deficiency
     Dosage: INJECT 135MG SUBCUTANEOUSLY WEEKLY. INJECT 1ML FROM THE 30MG VIAL?AND 0.7ML FROM THE 105MG VIAL. INJ
     Route: 058
  3. HEMLIBRA [Suspect]
     Active Substance: EMICIZUMAB-KXWH
     Indication: Factor VIII deficiency
     Dosage: INJECT 135MG SUBCUTANEOUSLY WEEKLY. INJECT 1ML FROM THE 30MG VIAL AND 0.7ML FROM?THE 105MG VIAL. INJ
     Route: 058
  4. DILAUDID [Concomitant]
     Active Substance: HYDROMORPHONE HYDROCHLORIDE
  5. TYLENOL [Concomitant]
     Active Substance: ACETAMINOPHEN
  6. GABAPENTIN [Concomitant]
     Active Substance: GABAPENTIN
  7. METHOCARBAMOL [Concomitant]
     Active Substance: METHOCARBAMOL
  8. VALPROIC ACID [Concomitant]
     Active Substance: VALPROIC ACID
  9. MIRTAZAPINE [Concomitant]
     Active Substance: MIRTAZAPINE
  10. OLANZAPINE [Concomitant]
     Active Substance: OLANZAPINE
  11. AMLODIPINE [Concomitant]
     Active Substance: AMLODIPINE BESYLATE
  12. PANTOPRAZOLE [Concomitant]
     Active Substance: PANTOPRAZOLE
  13. STOOL SOFTENER (DOCUSATE) [Concomitant]
     Active Substance: DOCUSATE

REACTIONS (3)
  - Cerebral haemorrhage [Recovering/Resolving]
  - Cerebrovascular accident [Recovering/Resolving]
  - Product dose omission issue [Unknown]

NARRATIVE: CASE EVENT DATE: 20220501
